FAERS Safety Report 8206747-3 (Version None)
Quarter: 2012Q1

REPORT INFORMATION
  Report Type: 
  Country: None (occurrence: None)
  Receive Date: 20120314
  Receipt Date: 20120306
  Transmission Date: 20120608
  Serious: Yes (Life-Threatening, Hospitalization, Disabling)
  Sender: FDA-Public Use
  Company Number: FR-BRISTOL-MYERS SQUIBB COMPANY-16439986

PATIENT
  Age: 35 Year
  Sex: Female

DRUGS (8)
  1. RIFABUTIN [Suspect]
     Indication: PULMONARY TUBERCULOSIS
     Route: 048
     Dates: start: 20111014, end: 20111128
  2. TRUVADA [Concomitant]
  3. MYAMBUTOL [Suspect]
     Indication: PULMONARY TUBERCULOSIS
     Route: 048
     Dates: start: 20111014, end: 20111128
  4. ATARAX [Concomitant]
  5. SUSTIVA [Suspect]
     Indication: HIV INFECTION
  6. PYRAZINAMIDE [Suspect]
     Indication: PULMONARY TUBERCULOSIS
     Route: 048
     Dates: start: 20111014, end: 20111128
  7. RIMIFON [Suspect]
     Indication: PULMONARY TUBERCULOSIS
     Dosage: 150 MG
     Route: 048
     Dates: start: 20111014, end: 20111128
  8. ACETAMINOPHEN [Concomitant]
     Indication: PAIN

REACTIONS (2)
  - HEPATITIS FULMINANT [None]
  - HEPATIC ENCEPHALOPATHY [None]
